FAERS Safety Report 5727694-2 (Version None)
Quarter: 2008Q2

REPORT INFORMATION
  Report Type: 
  Country: None (occurrence: None)
  Receive Date: 20080505
  Receipt Date: 20080428
  Transmission Date: 20081010
  Serious: Yes (Other)
  Sender: FDA-Public Use
  Company Number: PHEH2008US03187

PATIENT
  Sex: Male

DRUGS (1)
  1. SERENTIL [Suspect]
     Indication: SCHIZOPHRENIA
     Dosage: 100 MG, QHS
     Route: 048
     Dates: start: 19840101, end: 20050101

REACTIONS (9)
  - DIABETES MELLITUS [None]
  - GASTROINTESTINAL DISORDER [None]
  - HEADACHE [None]
  - HEPATOCELLULAR INJURY [None]
  - LIFE EXPECTANCY SHORTENED [None]
  - PHARMACEUTICAL PRODUCT COMPLAINT [None]
  - RENAL DISORDER [None]
  - REPRODUCTIVE TRACT DISORDER [None]
  - WEIGHT DECREASED [None]
